FAERS Safety Report 6765509-4 (Version None)
Quarter: 2010Q2

REPORT INFORMATION
  Report Type: 
  Country: None (occurrence: None)
  Receive Date: 20100611
  Receipt Date: 20100531
  Transmission Date: 20101027
  Serious: Yes (Other)
  Sender: FDA-Public Use
  Company Number: PHHY2010BE36604

PATIENT
  Sex: Male

DRUGS (11)
  1. TEGRETOL [Suspect]
     Indication: AFFECTIVE DISORDER
     Dosage: 600 MG, DAILY
  2. TEGRETOL [Suspect]
     Dosage: UNK
     Route: 048
  3. VALPROIC ACID [Suspect]
     Indication: AFFECTIVE DISORDER
     Dosage: 3 G, DAILY
  4. CLOPIXOL [Concomitant]
     Dosage: 25 MG, DAILY
  5. DORMONOCT [Concomitant]
     Dosage: 2 MG, DAILY
  6. TRAZOLAN [Concomitant]
     Dosage: 100 MG, BID
  7. PANTOPRAZOLE [Concomitant]
     Dosage: 40 MG, DAILY
  8. ZYPREXA [Concomitant]
     Dosage: 5 MG, UNK
  9. LYSOMUCIL [Concomitant]
  10. NOZINAN                                 /NET/ [Concomitant]
  11. ETUMINE [Concomitant]
     Indication: MINERAL SUPPLEMENTATION
     Dosage: 40 MG, QID

REACTIONS (14)
  - AGGRESSION [None]
  - AGITATION [None]
  - DECREASED APPETITE [None]
  - GASTROINTESTINAL HAEMORRHAGE [None]
  - GENERAL PHYSICAL HEALTH DETERIORATION [None]
  - HAEMATOCRIT DECREASED [None]
  - HAEMATOMA [None]
  - HAEMOGLOBIN DECREASED [None]
  - HYPONATRAEMIA [None]
  - HYPOTENSION [None]
  - NASOPHARYNGITIS [None]
  - PLATELET COUNT DECREASED [None]
  - RED BLOOD CELL COUNT DECREASED [None]
  - WHITE BLOOD CELL COUNT DECREASED [None]
